FAERS Safety Report 8409953-8 (Version None)
Quarter: 2012Q2

REPORT INFORMATION
  Report Type: 
  Country: None (occurrence: None)
  Receive Date: 20120605
  Receipt Date: 20120523
  Transmission Date: 20120825
  Serious: Yes (Hospitalization, Other)
  Sender: FDA-Public Use
  Company Number: AU-BRISTOL-MYERS SQUIBB COMPANY-16640104

PATIENT
  Age: 84 Year
  Sex: Male

DRUGS (6)
  1. MITOMYCIN [Suspect]
     Indication: COLON CANCER METASTATIC
     Dosage: INJ
     Route: 065
  2. BEVACIZUMAB [Suspect]
     Indication: COLON CANCER METASTATIC
     Route: 065
  3. FLUOROURACIL [Suspect]
     Indication: COLON CANCER METASTATIC
     Route: 065
  4. LEUCOVORIN CALCIUM [Suspect]
     Indication: COLON CANCER METASTATIC
     Route: 065
  5. CAPECITABINE [Suspect]
     Indication: COLON CANCER METASTATIC
     Dosage: DOSE REDUCED
     Route: 065
  6. OXALIPLATIN [Suspect]
     Indication: COLON CANCER METASTATIC
     Route: 065

REACTIONS (11)
  - EPISTAXIS [None]
  - GUILLAIN-BARRE SYNDROME [None]
  - DYSPNOEA [None]
  - MUSCULAR WEAKNESS [None]
  - BACTERAEMIA [None]
  - DIARRHOEA [None]
  - SPEECH DISORDER [None]
  - PANCYTOPENIA [None]
  - HYPOREFLEXIA [None]
  - DYSPHAGIA [None]
  - PALMAR-PLANTAR ERYTHRODYSAESTHESIA SYNDROME [None]
